FAERS Safety Report 14436204 (Version 1)
Quarter: 2018Q1

REPORT INFORMATION
  Report Type: Spontaneous
  Country: US (occurrence: US)
  Receive Date: 20180124
  Receipt Date: 20180124
  Transmission Date: 20180509
  Serious: Yes (Other)
  Sender: FDA-Public Use
  Company Number: None

PATIENT
  Age: 51 Year
  Sex: Female
  Weight: 75.3 kg

DRUGS (1)
  1. PACLITAXEL. [Suspect]
     Active Substance: PACLITAXEL
     Indication: BREAST CANCER
     Dosage: ?          OTHER FREQUENCY:ONE TIME;?
     Route: 042
     Dates: start: 20180110, end: 20180110

REACTIONS (2)
  - Product quality issue [None]
  - Rash [None]

NARRATIVE: CASE EVENT DATE: 20180110
